FAERS Safety Report 24414721 (Version 1)
Quarter: 2024Q4

REPORT INFORMATION
  Report Type: Report from Study
  Country: US (occurrence: US)
  Receive Date: 20241009
  Receipt Date: 20241009
  Transmission Date: 20250114
  Serious: Yes (Other)
  Sender: ROCHE
  Company Number: US-ROCHE-10000091964

PATIENT
  Age: 79 Year
  Sex: Female

DRUGS (17)
  1. OCREVUS [Suspect]
     Active Substance: OCRELIZUMAB
     Indication: Relapsing multiple sclerosis
     Dosage: FOLLOWED BY ANOTHER, 300MG, IV 2 WEEK APART
     Route: 050
  2. ACETAMINOPHEN [Concomitant]
     Active Substance: ACETAMINOPHEN
     Route: 048
  3. CHOLECALCIFEROL [Concomitant]
     Active Substance: CHOLECALCIFEROL
     Route: 048
  4. CLOPIDOGREL [Concomitant]
     Active Substance: CLOPIDOGREL BISULFATE
     Route: 048
  5. DICLOFENAC [Concomitant]
     Active Substance: DICLOFENAC
  6. DONEPEZIL [Concomitant]
     Active Substance: DONEPEZIL
     Route: 048
  7. DULOXETINE [Concomitant]
     Active Substance: DULOXETINE
  8. FAMOTIDINE [Concomitant]
     Active Substance: FAMOTIDINE
     Route: 048
  9. LEVOTHYROXINE [Concomitant]
     Active Substance: LEVOTHYROXINE
     Route: 048
  10. LIDOCAINE [Concomitant]
     Active Substance: LIDOCAINE
  11. MEGESTROL [Concomitant]
     Active Substance: MEGESTROL
     Route: 048
  12. MEMANTINE [Concomitant]
     Active Substance: MEMANTINE
     Route: 048
  13. FERROUS SULFATE [Concomitant]
     Active Substance: FERROUS SULFATE
     Route: 048
  14. PRAVASTATIN [Concomitant]
     Active Substance: PRAVASTATIN
  15. PREGABALIN [Concomitant]
     Active Substance: PREGABALIN
  16. SUMATRIPTAN [Concomitant]
     Active Substance: SUMATRIPTAN
     Route: 048
  17. TRAMADOL [Concomitant]
     Active Substance: TRAMADOL
     Route: 048

REACTIONS (29)
  - Dementia Alzheimer^s type [Unknown]
  - Metabolic acidosis [Unknown]
  - Decubitus ulcer [Unknown]
  - Ataxia [Unknown]
  - Migraine [Unknown]
  - Obesity [Unknown]
  - Fatigue [Unknown]
  - Sensory loss [Unknown]
  - Hyperlipidaemia [Unknown]
  - Hypothyroidism [Unknown]
  - Metabolic encephalopathy [Unknown]
  - Paraesthesia [Unknown]
  - Peroneal nerve palsy [Unknown]
  - Hemiparesis [Unknown]
  - Systemic inflammatory response syndrome [Unknown]
  - Immunosuppression [Unknown]
  - Fall [Unknown]
  - Urinary tract infection [Unknown]
  - Coordination abnormal [Unknown]
  - Confusional state [Unknown]
  - Disorientation [Unknown]
  - Gait disturbance [Unknown]
  - Hypoaesthesia [Unknown]
  - Hypoaesthesia [Unknown]
  - Paraesthesia [Unknown]
  - Disturbance in attention [Unknown]
  - Memory impairment [Unknown]
  - Asthenia [Unknown]
  - Muscle spasticity [Unknown]
